FAERS Safety Report 16611667 (Version 4)
Quarter: 2020Q2

REPORT INFORMATION
  Report Type: Spontaneous
  Country: US (occurrence: US)
  Receive Date: 20190722
  Receipt Date: 20200413
  Transmission Date: 20200713
  Serious: Yes (Hospitalization, Other)
  Sender: FDA-Public Use
  Company Number: US-ALLERGAN-1919988US

PATIENT
  Sex: Female

DRUGS (2)
  1. TRIPTORELIN PAMOATE - BP [Suspect]
     Active Substance: TRIPTORELIN PAMOATE
     Dosage: 22.5 MG, SINGLE
     Route: 030
     Dates: start: 20180806, end: 20180806
  2. TRIPTORELIN PAMOATE - BP [Suspect]
     Active Substance: TRIPTORELIN PAMOATE
     Indication: PRODUCT USED FOR UNKNOWN INDICATION
     Dosage: 22.5 MG, SINGLE
     Route: 030
     Dates: start: 20190213, end: 20190213

REACTIONS (9)
  - Pyrexia [Recovered/Resolved]
  - Depression [Unknown]
  - Influenza like illness [Recovered/Resolved]
  - Blood glucose increased [Unknown]
  - Hypoaesthesia [Unknown]
  - Syncope [Unknown]
  - Muscular weakness [Recovered/Resolved]
  - Dizziness [Recovering/Resolving]
  - Nausea [Unknown]

NARRATIVE: CASE EVENT DATE: 2019
